FAERS Safety Report 7460926-1 (Version None)
Quarter: 2011Q2

REPORT INFORMATION
  Report Type: 
  Country: None (occurrence: None)
  Receive Date: 20110505
  Receipt Date: 20110420
  Transmission Date: 20111010
  Serious: Yes (Hospitalization, Other)
  Sender: FDA-Public Use
  Company Number: DE-GENENTECH-309935

PATIENT
  Sex: Female

DRUGS (2)
  1. ASPIRIN [Concomitant]
     Indication: PREMEDICATION
     Dosage: 100 UNK, UNK
     Route: 031
  2. LUCENTIS [Suspect]
     Indication: CHOROIDAL NEOVASCULARISATION
     Dosage: 0.05 ML, UNKNOWN
     Route: 031
     Dates: start: 20100929

REACTIONS (4)
  - RETINAL HAEMORRHAGE [None]
  - LENS DISORDER [None]
  - CONJUNCTIVAL HAEMORRHAGE [None]
  - VISUAL IMPAIRMENT [None]
